FAERS Safety Report 6315902-9 (Version None)
Quarter: 2009Q3

REPORT INFORMATION
  Report Type: 
  Country: None (occurrence: None)
  Receive Date: 20090820
  Receipt Date: 20071107
  Transmission Date: 20100115
  Serious: Yes (Hospitalization, Other)
  Sender: FDA-Public Use
  Company Number: US-ASTRAZENECA-2007UW14909

PATIENT
  Age: 373 Month
  Sex: Male
  Weight: 57.6 kg

DRUGS (9)
  1. SEROQUEL [Suspect]
     Indication: SLEEP DISORDER
     Dosage: 50 TO 200 MG
     Route: 048
     Dates: start: 20020101
  2. SEROQUEL [Suspect]
     Route: 048
     Dates: start: 20040413
  3. MORPHINE SULFATE [Concomitant]
     Dates: start: 20030819
  4. AMITRIPTYLINE [Concomitant]
     Dates: start: 20030819
  5. KLONOPIN [Concomitant]
     Dates: start: 20030819
  6. PERCOCET [Concomitant]
     Dosage: TWICE A WEEK
     Dates: start: 20040413
  7. PREVACID [Concomitant]
     Dates: start: 20040413
  8. PHENERGAN [Concomitant]
     Dates: start: 20040413
  9. VIOKASE [Concomitant]
     Indication: ABDOMINAL PAIN
     Dates: start: 20040413

REACTIONS (3)
  - PANCREATITIS ACUTE [None]
  - PANCREATITIS CHRONIC [None]
  - PANCREATITIS RELAPSING [None]
